FAERS Safety Report 20668547 (Version 1)
Quarter: 2022Q2

REPORT INFORMATION
  Report Type: Spontaneous
  Country: US (occurrence: None)
  Receive Date: 20220401
  Receipt Date: 20220401
  Transmission Date: 20220721
  Serious: No
  Sender: FDA-Public Use
  Company Number: None

PATIENT
  Sex: Male

DRUGS (2)
  1. GONADORELIN ACETATE [Suspect]
     Active Substance: GONADORELIN ACETATE
     Indication: Testicular atrophy
     Dosage: 0.25 ML  4 TIMES WEEKLY  SUBCUTANEOUS?
     Route: 058
     Dates: start: 20211014
  2. aporelin/ipamorelin [Concomitant]

REACTIONS (4)
  - Night sweats [None]
  - Chills [None]
  - Feeling jittery [None]
  - Recalled product administered [None]
